FAERS Safety Report 10252033 (Version 1)
Quarter: 2014Q2

REPORT INFORMATION
  Report Type: Spontaneous
  Country: FR (occurrence: FR)
  Receive Date: 20140623
  Receipt Date: 20140623
  Transmission Date: 20141212
  Serious: Yes (Disabling)
  Sender: FDA-Public Use
  Company Number: PHHY2014FR076281

PATIENT
  Age: 35 Year
  Sex: Female

DRUGS (16)
  1. NEORAL [Suspect]
     Indication: PROPHYLAXIS
     Dosage: 2 DF, UNK
     Dates: start: 201311, end: 201404
  2. CORTANCYL [Suspect]
     Dosage: UNK UKN, UNK
     Route: 048
     Dates: start: 201311
  3. CORTANCYL [Suspect]
     Dosage: 1.5 MG/KG,
     Route: 048
     Dates: start: 20140307
  4. CORTANCYL [Suspect]
     Dosage: 1 MG/KG,
     Route: 048
     Dates: start: 20140319
  5. ENTOCORT [Suspect]
     Dosage: UNK UKN, UNK
     Route: 048
     Dates: end: 201404
  6. RAPAMUNE [Suspect]
     Dosage: 1 MG, UNK
     Dates: start: 20140211, end: 201404
  7. OXACILLINE [Concomitant]
     Dosage: UNK UKN, UNK
  8. BACTRIM FORTE [Concomitant]
     Dosage: UNK UKN, UNK
  9. ZELITREX [Concomitant]
     Dosage: UNK UKN, UNK
  10. NOXAFIL [Concomitant]
     Dosage: UNK UKN, UNK
  11. FOLINORAL [Concomitant]
     Dosage: UNK UKN, UNK
  12. MAG 2 [Concomitant]
     Dosage: UNK UKN, UNK
  13. DIFFU K [Concomitant]
     Dosage: UNK UKN, UNK
  14. MOTILIN [Concomitant]
     Dosage: UNK UKN, UNK
  15. CACIT VITAMINE D3 [Concomitant]
     Dosage: UNK UKN, UNK
  16. METHOTREXATE [Concomitant]
     Dosage: UNK UKN, UNK
     Dates: start: 20140125

REACTIONS (1)
  - Myopathy [Recovering/Resolving]
